FAERS Safety Report 4673469-5 (Version None)
Quarter: 2005Q3

REPORT INFORMATION
  Report Type: 
  Country: None (occurrence: None)
  Receive Date: 20050525
  Receipt Date: 20050518
  Transmission Date: 20060218
  Serious: Yes (Other)
  Sender: FDA-Public Use
  Company Number: D0046617A

PATIENT
  Age: 65 Year
  Sex: Female

DRUGS (9)
  1. ATMADISC FORTE [Suspect]
     Dosage: 2PUFF AS REQUIRED
     Route: 055
  2. SPIRIVA [Concomitant]
     Route: 065
  3. DICLO [Concomitant]
     Route: 048
  4. EVISTA [Concomitant]
     Route: 048
  5. SINGULAIR [Concomitant]
     Route: 048
  6. CLARITHROMYCIN [Concomitant]
     Route: 065
  7. DOXYCYCLIN [Concomitant]
     Route: 065
  8. CIPROFLOXACIN [Concomitant]
     Route: 065
  9. SALBUTAMOL [Concomitant]
     Route: 048

REACTIONS (3)
  - HAEMORRHAGE [None]
  - ILL-DEFINED DISORDER [None]
  - THROMBOCYTOPENIA [None]
